FAERS Safety Report 23853642 (Version 1)
Quarter: 2024Q2

REPORT INFORMATION
  Report Type: Report from Study
  Country: US (occurrence: US)
  Receive Date: 20240514
  Receipt Date: 20240514
  Transmission Date: 20240716
  Serious: Yes (Hospitalization)
  Sender: FDA-Public Use
  Company Number: US-002147023-NVSC2024US092547

PATIENT
  Age: 69 Year
  Sex: Female

DRUGS (2)
  1. KESIMPTA [Suspect]
     Active Substance: OFATUMUMAB
     Indication: Multiple sclerosis
     Dosage: UNK
     Route: 065
  2. KESIMPTA [Suspect]
     Active Substance: OFATUMUMAB
     Dosage: 20 MG, 28 DAYS
     Route: 058
     Dates: start: 202403

REACTIONS (7)
  - Multiple sclerosis relapse [Recovered/Resolved]
  - Muscle spasticity [Unknown]
  - Nausea [Unknown]
  - Pain [Unknown]
  - Ear infection [Unknown]
  - Pyrexia [Unknown]
  - Chills [Unknown]

NARRATIVE: CASE EVENT DATE: 20240413
